FAERS Safety Report 18917672 (Version 1)
Quarter: 2021Q1

REPORT INFORMATION
  Report Type: Report from Study
  Country: None (occurrence: CO)
  Receive Date: 20210219
  Receipt Date: 20210219
  Transmission Date: 20210420
  Serious: Yes (Other)
  Sender: FDA-Public Use
  Company Number: CO-ABBVIE-21K-036-3753726-00

PATIENT
  Age: 29 Year
  Sex: Female
  Weight: 79 kg

DRUGS (1)
  1. HUMIRA [Suspect]
     Active Substance: ADALIMUMAB
     Indication: PSORIASIS
     Route: 058
     Dates: start: 20200518, end: 20210112

REACTIONS (9)
  - Psoriasis [Recovering/Resolving]
  - Abdominal pain [Recovering/Resolving]
  - Ovarian cyst [Recovering/Resolving]
  - Menstrual disorder [Recovering/Resolving]
  - Cholelithiasis [Recovering/Resolving]
  - Weight decreased [Recovering/Resolving]
  - Bacterial vaginosis [Recovering/Resolving]
  - Abdominal pain [Recovered/Resolved]
  - Stress [Recovering/Resolving]

NARRATIVE: CASE EVENT DATE: 2020
